FAERS Safety Report 7483006-8 (Version None)
Quarter: 2011Q2

REPORT INFORMATION
  Report Type: 
  Country: None (occurrence: None)
  Receive Date: 20110516
  Receipt Date: 20110416
  Transmission Date: 20111010
  Serious: No
  Sender: FDA-Public Use
  Company Number: US-BAYER-2011-034817

PATIENT
  Age: 2 Year
  Sex: Male
  Weight: 15.873 kg

DRUGS (1)
  1. ALEVE (CAPLET) [Suspect]
     Dosage: 2 DF, ONCE
     Route: 048
     Dates: start: 20110416, end: 20110416

REACTIONS (1)
  - NO ADVERSE EVENT [None]
